FAERS Safety Report 8806672 (Version 1)
Quarter: 2012Q4

REPORT INFORMATION
  Report Type: Spontaneous
  Country: US (occurrence: None)
  Receive Date: 20120920
  Receipt Date: 20120920
  Transmission Date: 20130627
  Serious: No
  Sender: FDA-Public Use
  Company Number: None

PATIENT
  Age: 34 Year
  Sex: Female
  Weight: 140 kg

DRUGS (2)
  1. LAMOTRIGINE [Suspect]
     Indication: BIPOLAR I DISORDER
     Dates: start: 20120120
  2. DEPAKOTE [Suspect]
     Dates: start: 20120320, end: 201209

REACTIONS (3)
  - Fatigue [None]
  - Cognitive disorder [None]
  - Unevaluable event [None]
